FAERS Safety Report 23064880 (Version 2)
Quarter: 2023Q4

REPORT INFORMATION
  Report Type: Spontaneous
  Country: US (occurrence: US)
  Receive Date: 20231013
  Receipt Date: 20231026
  Transmission Date: 20240110
  Serious: No
  Sender: FDA-Public Use
  Company Number: US-MYLANLABS-2023M1096145

PATIENT
  Age: 66 Year
  Sex: Male
  Weight: 99.79 kg

DRUGS (2)
  1. GABAPENTIN [Suspect]
     Active Substance: GABAPENTIN
     Indication: Product used for unknown indication
     Dosage: 200 MILLIGRAM, QD (100MG 2 CAPSULES IN THE MORNING)
     Route: 065
     Dates: start: 202304
  2. GABAPENTIN [Suspect]
     Active Substance: GABAPENTIN
     Indication: Product used for unknown indication
     Dosage: 900 MILLIGRAM, QD (300MG, 3 CAPSULES AT BED TIME)
     Route: 065
     Dates: start: 202304

REACTIONS (3)
  - Dysgeusia [Recovering/Resolving]
  - Dizziness [Recovering/Resolving]
  - Off label use [Unknown]

NARRATIVE: CASE EVENT DATE: 20230831
